FAERS Safety Report 14958016 (Version 1)
Quarter: 2018Q2

REPORT INFORMATION
  Report Type: Spontaneous
  Country: US (occurrence: US)
  Receive Date: 20180531
  Receipt Date: 20180531
  Transmission Date: 20180711
  Serious: No
  Sender: FDA-Public Use
  Company Number: US-ENDO PHARMACEUTICALS INC-2017-005605

PATIENT
  Sex: Male
  Weight: 31.75 kg

DRUGS (1)
  1. SUPPRELIN LA [Suspect]
     Active Substance: HISTRELIN ACETATE
     Indication: PRECOCIOUS PUBERTY
     Dosage: 50 MG, UNKNOWN
     Route: 065
     Dates: start: 201705

REACTIONS (2)
  - Blood luteinising hormone increased [Unknown]
  - Blood follicle stimulating hormone increased [Unknown]

NARRATIVE: CASE EVENT DATE: 2017
